FAERS Safety Report 21978363 (Version 2)
Quarter: 2023Q1

REPORT INFORMATION
  Report Type: Other
  Country: IT (occurrence: IT)
  Receive Date: 20230210
  Receipt Date: 20230221
  Transmission Date: 20230418
  Serious: Yes (Death)
  Sender: FDA-Public Use
  Company Number: IT-ALVOGEN-2023089133

PATIENT
  Age: 29 Year
  Sex: Male
  Weight: 80 kg

DRUGS (6)
  1. FENTANYL [Suspect]
     Active Substance: FENTANYL
     Indication: Product used for unknown indication
  2. MORPHINE [Concomitant]
     Active Substance: MORPHINE
     Indication: Product used for unknown indication
  3. BEG [Concomitant]
     Indication: Product used for unknown indication
  4. ETHYL ALCOHOL [Concomitant]
     Active Substance: ALCOHOL
     Indication: Product used for unknown indication
  5. METHADONE [Concomitant]
     Active Substance: METHADONE HYDROCHLORIDE
     Indication: Product used for unknown indication
  6. ALPRAZOLAM [Concomitant]
     Active Substance: ALPRAZOLAM
     Indication: Product used for unknown indication

REACTIONS (14)
  - Toxicity to various agents [Fatal]
  - Foreign body aspiration [Fatal]
  - Obstructive airways disorder [Fatal]
  - Respiratory failure [Fatal]
  - Depressed level of consciousness [Fatal]
  - Musculoskeletal stiffness [Fatal]
  - Haemothorax [Fatal]
  - Asphyxia [Fatal]
  - Visceral congestion [Fatal]
  - Brain oedema [Fatal]
  - Pulmonary oedema [Fatal]
  - Emphysema [Fatal]
  - Incorrect route of product administration [Fatal]
  - Intentional device misuse [Fatal]
